FAERS Safety Report 4369622-0 (Version None)
Quarter: 2004Q2

REPORT INFORMATION
  Report Type: 
  Country: None (occurrence: None)
  Receive Date: 20040527
  Receipt Date: 20040507
  Transmission Date: 20050107
  Serious: Yes (Hospitalization, Other)
  Sender: FDA-Public Use
  Company Number: USA040259861

PATIENT
  Age: 58 Year
  Sex: Female
  Weight: 95 kg

DRUGS (6)
  1. ZYPREXA [Suspect]
     Indication: SCHIZOAFFECTIVE DISORDER
     Dosage: 30 MG/1 AT BEDTIME
     Dates: start: 19980701
  2. BENADRYL [Concomitant]
  3. HALDOL [Suspect]
  4. LIPITOR [Suspect]
  5. TOPROL-XL [Concomitant]
  6. ZOLOFT [Concomitant]

REACTIONS (3)
  - BLOOD GLUCOSE INCREASED [None]
  - MYOCARDIAL INFARCTION [None]
  - WEIGHT INCREASED [None]
